FAERS Safety Report 24034617 (Version 1)
Quarter: 2024Q3

REPORT INFORMATION
  Report Type: Report from Study
  Country: DE (occurrence: DE)
  Receive Date: 20240701
  Receipt Date: 20240701
  Transmission Date: 20241017
  Serious: No
  Sender: ROCHE
  Company Number: DE-ROCHE-3572768

PATIENT
  Age: 11 Year
  Sex: Female
  Weight: 50.0 kg

DRUGS (5)
  1. EVRYSDI [Suspect]
     Active Substance: RISDIPLAM
     Indication: Spinal muscular atrophy
     Dosage: ON 14/MAY/2024, SHE RECEIVED MOST RECENT DOSE OF RISDIPLAM.
     Route: 048
     Dates: start: 20201119
  2. CHOLECALCIFEROL [Concomitant]
     Active Substance: CHOLECALCIFEROL
  3. IBUPROFEN [Concomitant]
     Active Substance: IBUPROFEN
     Dates: start: 2019
  4. METAMIZOLE SODIUM [Concomitant]
     Active Substance: METAMIZOLE SODIUM
     Dates: start: 202208
  5. PREGABALIN [Concomitant]
     Active Substance: PREGABALIN
     Dates: start: 202208

REACTIONS (2)
  - Cough [Recovered/Resolved]
  - C-reactive protein increased [Recovered/Resolved]

NARRATIVE: CASE EVENT DATE: 20240514
